FAERS Safety Report 18155888 (Version 2)
Quarter: 2020Q4

REPORT INFORMATION
  Report Type: Spontaneous
  Country: US (occurrence: US)
  Receive Date: 20200817
  Receipt Date: 20201028
  Transmission Date: 20210113
  Serious: No
  Sender: FDA-Public Use
  Company Number: US-BIOGEN-2020BI00880236

PATIENT
  Sex: Female

DRUGS (2)
  1. TECFIDERA [Suspect]
     Active Substance: DIMETHYL FUMARATE
     Dosage: MAINTENANCE DOSE
     Route: 065
     Dates: start: 20200228
  2. TECFIDERA [Suspect]
     Active Substance: DIMETHYL FUMARATE
     Indication: MULTIPLE SCLEROSIS
     Dosage: 7 DAYS
     Route: 065
     Dates: start: 20200520

REACTIONS (8)
  - Abdominal discomfort [Unknown]
  - Nausea [Unknown]
  - Burning sensation [Unknown]
  - Pruritus [Not Recovered/Not Resolved]
  - Vertigo [Unknown]
  - Anaemia [Unknown]
  - Miliaria [Unknown]
  - Flushing [Not Recovered/Not Resolved]
